FAERS Safety Report 15931948 (Version 3)
Quarter: 2019Q2

REPORT INFORMATION
  Report Type: Spontaneous
  Country: US (occurrence: US)
  Receive Date: 20190207
  Receipt Date: 20190423
  Transmission Date: 20190711
  Serious: No
  Sender: FDA-Public Use
  Company Number: US-TEVA-2019-US-1006306

PATIENT
  Age: 65 Year
  Sex: Female
  Weight: 61 kg

DRUGS (2)
  1. AJOVY [Suspect]
     Active Substance: FREMANEZUMAB-VFRM
     Indication: MIGRAINE
     Dates: start: 20181221
  2. BOTOX [Concomitant]
     Active Substance: ONABOTULINUMTOXINA
     Indication: MIGRAINE

REACTIONS (6)
  - Rash [Not Recovered/Not Resolved]
  - Pruritus [Not Recovered/Not Resolved]
  - Injection site reaction [Unknown]
  - Swelling [Not Recovered/Not Resolved]
  - Discomfort [Not Recovered/Not Resolved]
  - Contusion [Not Recovered/Not Resolved]

NARRATIVE: CASE EVENT DATE: 20190321
